FAERS Safety Report 9625709 (Version 1)
Quarter: 2013Q4

REPORT INFORMATION
  Report Type: Report from Study
  Country: DE (occurrence: DE)
  Receive Date: 20131016
  Receipt Date: 20131016
  Transmission Date: 20140711
  Serious: Yes (Death, Life-Threatening, Hospitalization, Other)
  Sender: FDA-Public Use
  Company Number: DE-ROCHE-1288607

PATIENT
  Age: 69 Year
  Sex: Female

DRUGS (13)
  1. BLINDED GS-1101 [Suspect]
     Indication: CHRONIC LYMPHOCYTIC LEUKAEMIA
     Route: 048
     Dates: start: 20130807, end: 20130821
  2. RITUXIMAB [Suspect]
     Indication: CHRONIC LYMPHOCYTIC LEUKAEMIA
     Route: 042
     Dates: start: 20130807, end: 20130821
  3. INSULIN [Concomitant]
  4. METFORMIN [Concomitant]
     Route: 065
     Dates: end: 20130818
  5. CIPRAMIL [Concomitant]
  6. PANTOZOL (GERMANY) [Concomitant]
  7. LANTUS [Concomitant]
     Route: 065
     Dates: end: 20130807
  8. SODIUM CHLORIDE [Concomitant]
  9. VOMEX A [Concomitant]
  10. PARACETAMOL [Concomitant]
  11. DECORTIN H [Concomitant]
  12. FENISTIL (GERMANY) [Concomitant]
  13. CEFUROXIME [Concomitant]
     Route: 065
     Dates: start: 20130815, end: 20130818

REACTIONS (2)
  - Pneumocystis jirovecii pneumonia [Fatal]
  - Acute myocardial infarction [Not Recovered/Not Resolved]
